FAERS Safety Report 9062397 (Version 1)
Quarter: 2013Q1

REPORT INFORMATION
  Report Type: Spontaneous
  Country: JP (occurrence: JP)
  Receive Date: 20130213
  Receipt Date: 20130213
  Transmission Date: 20140127
  Serious: Yes (Hospitalization)
  Sender: FDA-Public Use
  Company Number: JP-GLAXOSMITHKLINE-B0866342A

PATIENT
  Sex: Female

DRUGS (4)
  1. LAMICTAL [Suspect]
     Indication: BIPOLAR DISORDER
     Route: 048
  2. LAMICTAL [Suspect]
     Indication: BIPOLAR DISORDER
     Dosage: 200MG PER DAY
     Route: 048
  3. JZOLOFT [Concomitant]
     Route: 048
  4. ZYPREXA [Concomitant]
     Route: 048

REACTIONS (4)
  - Cholelithiasis [Unknown]
  - Rash pruritic [Recovering/Resolving]
  - Drug eruption [Unknown]
  - Hepatic function abnormal [Unknown]
